FAERS Safety Report 7781665-3 (Version None)
Quarter: 2011Q3

REPORT INFORMATION
  Report Type: 
  Country: None (occurrence: None)
  Receive Date: 20110927
  Receipt Date: 20110518
  Transmission Date: 20111222
  Serious: No
  Sender: FDA-Public Use
  Company Number: US-BAYER-2011-044037

PATIENT
  Age: 39 Year
  Sex: Male
  Weight: 107 kg

DRUGS (1)
  1. ALEVE [Suspect]
     Dosage: 3 TABLETS ONE TIME - 40 COUNT
     Route: 048

REACTIONS (1)
  - NO ADVERSE EVENT [None]
